FAERS Safety Report 7014788-7 (Version None)
Quarter: 2010Q3

REPORT INFORMATION
  Report Type: 
  Country: None (occurrence: None)
  Receive Date: 20100927
  Receipt Date: 20100915
  Transmission Date: 20110219
  Serious: Yes (Hospitalization, Other)
  Sender: FDA-Public Use
  Company Number: JP-BRISTOL-MYERS SQUIBB COMPANY-14456149

PATIENT
  Age: 56 Year
  Sex: Male

DRUGS (5)
  1. PARAPLATIN [Suspect]
     Indication: LUNG NEOPLASM MALIGNANT
     Dosage: THERAPY DATE 15-JUN-2007 TO 24-AUG-2007
     Route: 041
     Dates: start: 20070615, end: 20070615
  2. TAXOL [Suspect]
     Indication: LUNG NEOPLASM MALIGNANT
     Dosage: THERAPY DATE 15-JUN-2007 TO 24-AUG-2007
     Route: 041
     Dates: start: 20070615, end: 20070615
  3. TAXOTERE [Suspect]
     Indication: LUNG NEOPLASM MALIGNANT
     Dosage: THERAPY FROM 09-JAN-2008 TO 03-DEC-2008
     Route: 041
     Dates: start: 20080109, end: 20080109
  4. SPIRIVA [Concomitant]
     Route: 055
     Dates: start: 20070518
  5. SEREVENT [Concomitant]
     Route: 055
     Dates: start: 20070518

REACTIONS (2)
  - NEUROPATHY PERIPHERAL [None]
  - PNEUMOTHORAX [None]
